FAERS Safety Report 4430002-0 (Version None)
Quarter: 2004Q3

REPORT INFORMATION
  Report Type: 
  Country: None (occurrence: None)
  Receive Date: 20040820
  Receipt Date: 20040810
  Transmission Date: 20050211
  Serious: Yes (Hospitalization)
  Sender: FDA-Public Use
  Company Number: GB-AMGEN-US087711

PATIENT
  Sex: Female

DRUGS (9)
  1. ENBREL [Suspect]
     Indication: RHEUMATOID ARTHRITIS
     Route: 058
     Dates: start: 20031115
  2. ARAVA [Concomitant]
  3. PREDNISOLONE [Concomitant]
  4. BISOPROLOL FUMARATE [Concomitant]
  5. VOLTAREN [Concomitant]
  6. AMLODIPINE [Concomitant]
  7. SLOW-K [Concomitant]
  8. DIHYDROCODEINE BITARTRATE [Concomitant]
  9. ACETAMINOPHEN [Concomitant]

REACTIONS (1)
  - BACK PAIN [None]
